FAERS Safety Report 5005269-0 (Version None)
Quarter: 2006Q2

REPORT INFORMATION
  Report Type: 
  Country: None (occurrence: None)
  Receive Date: 20060518
  Receipt Date: 20060515
  Transmission Date: 20061013
  Serious: Yes (Other)
  Sender: FDA-Public Use
  Company Number: US-GLAXOSMITHKLINE-A0605604A

PATIENT
  Age: 77 Year
  Sex: Male

DRUGS (6)
  1. ADVAIR DISKUS 100/50 [Suspect]
     Indication: ASTHMA
     Dosage: 1PUFF TWICE PER DAY
     Route: 055
     Dates: start: 20051201
  2. ASACOL [Concomitant]
  3. OMEPRAZOLE [Concomitant]
  4. KEPPRA [Concomitant]
  5. VITAMIN B-12 [Concomitant]
  6. CENTRUM SILVER [Concomitant]

REACTIONS (3)
  - ASTHMA [None]
  - GROIN PAIN [None]
  - MUSCULOSKELETAL CHEST PAIN [None]
